FAERS Safety Report 9455590 (Version 2)
Quarter: 2013Q3

REPORT INFORMATION
  Report Type: Spontaneous
  Country: US (occurrence: US)
  Receive Date: 20130813
  Receipt Date: 20130916
  Transmission Date: 20140515
  Serious: Yes (Hospitalization)
  Sender: FDA-Public Use
  Company Number: US-PFIZER INC-2013229604

PATIENT
  Age: 86 Year
  Sex: Male

DRUGS (10)
  1. SUTENT [Suspect]
     Indication: NEOPLASM MALIGNANT
     Dosage: 37.5 MG, 1X/DAY (DAILY CONTINUOUSLY)
  2. MORPHINE SULFATE [Suspect]
     Dosage: UNK
  3. MS CONTIN [Concomitant]
     Dosage: UNK
  4. ALLOPURINOL [Concomitant]
     Dosage: UNK
  5. COUMADINE [Concomitant]
     Dosage: UNK
  6. MIRALAX [Concomitant]
     Dosage: UNK
  7. LIDOCAINE [Concomitant]
     Dosage: UNK
  8. CALCIUM [Concomitant]
     Dosage: UNK
  9. REMERON [Concomitant]
     Dosage: UNK
  10. XGEVA [Concomitant]
     Dosage: UNK, MONTHLY

REACTIONS (18)
  - Fall [Unknown]
  - Dyspnoea [Unknown]
  - Pyrexia [Unknown]
  - Dehydration [Unknown]
  - Decreased appetite [Unknown]
  - Weight decreased [Unknown]
  - Stomatitis [Unknown]
  - Somnolence [Unknown]
  - Dry mouth [Unknown]
  - Yellow skin [Unknown]
  - Dysphonia [Unknown]
  - Oropharyngeal pain [Unknown]
  - Constipation [Unknown]
  - Renal pain [Unknown]
  - Bone pain [Unknown]
  - Confusional state [Unknown]
  - Disease progression [Unknown]
  - Neoplasm malignant [Unknown]
